FAERS Safety Report 7287243-7 (Version None)
Quarter: 2011Q1

REPORT INFORMATION
  Report Type: 
  Country: None (occurrence: None)
  Receive Date: 20110211
  Receipt Date: 20110203
  Transmission Date: 20110831
  Serious: No
  Sender: FDA-Public Use
  Company Number: US-BAYER-2011-011493

PATIENT
  Sex: Female

DRUGS (1)
  1. NATAZIA [Suspect]
     Indication: VAGINAL HAEMORRHAGE

REACTIONS (1)
  - NO ADVERSE EVENT [None]
